FAERS Safety Report 5871867-5 (Version None)
Quarter: 2008Q3

REPORT INFORMATION
  Report Type: 
  Country: None (occurrence: None)
  Receive Date: 20080905
  Receipt Date: 20080827
  Transmission Date: 20090109
  Serious: Yes (Hospitalization)
  Sender: FDA-Public Use
  Company Number: DK-ABBOTT-08P-044-0463510-00

PATIENT
  Sex: Male
  Weight: 84 kg

DRUGS (5)
  1. HUMIRA [Suspect]
     Indication: RHEUMATOID ARTHRITIS
     Route: 058
     Dates: start: 20080422
  2. HUMIRA [Suspect]
  3. TRAMADOL HCL [Concomitant]
     Indication: DRUG USE FOR UNKNOWN INDICATION
  4. METHOTREXATE [Concomitant]
     Indication: RHEUMATOID ARTHRITIS
  5. FOLIC ACID [Concomitant]
     Indication: DRUG USE FOR UNKNOWN INDICATION
     Dates: start: 20080422

REACTIONS (2)
  - ATRIAL FIBRILLATION [None]
  - CEREBRAL INFARCTION [None]
